FAERS Safety Report 8823986 (Version 2)
Quarter: 2012Q4

REPORT INFORMATION
  Report Type: 
  Country: JP (occurrence: JP)
  Receive Date: 20121003
  Receipt Date: 20121010
  Transmission Date: 20130627
  Serious: Yes (Hospitalization)
  Sender: FDA-Public Use
  Company Number: JP-MERCK-1101USA00257

PATIENT
  Age: 54 Year
  Sex: Male

DRUGS (7)
  1. GLACTIV [Suspect]
     Indication: TYPE 2 DIABETES MELLITUS
     Dosage: 50 mg, qd
     Route: 048
     Dates: start: 20100623, end: 20100915
  2. IMIDAPRIL HYDROCHLORIDE [Concomitant]
  3. ASPIRIN [Concomitant]
  4. WARFARIN POTASSIUM [Concomitant]
  5. ALLOPURINOL [Concomitant]
  6. FUROSEMIDE [Concomitant]
  7. LEVOFLOXACIN [Concomitant]
     Dosage: UNK
     Dates: start: 20100823, end: 20100902

REACTIONS (6)
  - Drug eruption [Recovered/Resolved]
  - Erythema [Recovered/Resolved]
  - Pruritus [Recovered/Resolved]
  - Rash papular [Recovered/Resolved]
  - Eosinophil count increased [Recovered/Resolved]
  - Epididymitis [Unknown]
